FAERS Safety Report 8894733 (Version 1)
Quarter: 2012Q4

REPORT INFORMATION
  Report Type: 
  Country: US (occurrence: US)
  Receive Date: 20121108
  Receipt Date: 20121108
  Transmission Date: 20130627
  Serious: No
  Sender: FDA-Public Use
  Company Number: US-009507513-1211USA002798

PATIENT
  Age: 65 Year
  Sex: Female

DRUGS (1)
  1. SAPHRIS [Suspect]
     Dosage: UNK
     Dates: start: 20121101, end: 20121101

REACTIONS (2)
  - Sedation [Recovered/Resolved]
  - Dizziness [Recovered/Resolved]
